FAERS Safety Report 10648804 (Version 2)
Quarter: 2014Q4

REPORT INFORMATION
  Report Type: Spontaneous
  Country: BR (occurrence: BR)
  Receive Date: 20141212
  Receipt Date: 20141229
  Transmission Date: 20150529
  Serious: Yes (Hospitalization)
  Sender: FDA-Public Use
  Company Number: PHHY2014BR162954

PATIENT
  Age: 6 Year
  Sex: Male

DRUGS (3)
  1. RITALIN LA [Suspect]
     Active Substance: METHYLPHENIDATE HYDROCHLORIDE
     Indication: PSYCHOMOTOR HYPERACTIVITY
     Dosage: UNK OT, QD (ONCE IN THE MORNING)
     Route: 048
  2. TRILEPTAL [Suspect]
     Active Substance: OXCARBAZEPINE
     Indication: PRODUCT USED FOR UNKNOWN INDICATION
     Dosage: UNK UKN, UNK
     Route: 048
  3. RISPERIDONA [Concomitant]
     Active Substance: RISPERIDONE
     Indication: AGITATION
     Dosage: 1 DF, QD
     Route: 048

REACTIONS (1)
  - Seizure [Recovering/Resolving]
